FAERS Safety Report 4417222-6 (Version None)
Quarter: 2004Q3

REPORT INFORMATION
  Report Type: 
  Country: None (occurrence: None)
  Receive Date: 20040806
  Receipt Date: 20040727
  Transmission Date: 20050211
  Serious: Yes (Hospitalization)
  Sender: FDA-Public Use
  Company Number: FR-ROCHE-375779

PATIENT
  Age: 51 Year
  Sex: Female
  Weight: 63 kg

DRUGS (2)
  1. PEGASYS [Suspect]
     Indication: HEPATITIS C
     Dosage: FORM: INJECTABLE SOLUTION. DISCONTINUED DUE TO ANAEMIA HAEMOGLOBIN 8G/DL
     Route: 058
     Dates: start: 20030613, end: 20030926
  2. REBETOL [Suspect]
     Indication: HEPATITIS C
     Dosage: DOSAGE REGIMEN: 1000MG. DISCONTINUED DUE TO ANAEMIA HAEMOGLOBIN 8G/DL
     Route: 048
     Dates: start: 20030613, end: 20031013

REACTIONS (10)
  - ANAEMIA [None]
  - ANOREXIA [None]
  - ASTHENIA [None]
  - DEPRESSION [None]
  - DIZZINESS [None]
  - INSOMNIA [None]
  - LIPASE INCREASED [None]
  - LYMPHOPENIA [None]
  - MYALGIA [None]
  - TRANSAMINASES INCREASED [None]
